FAERS Safety Report 10635901 (Version 1)
Quarter: 2014Q4

REPORT INFORMATION
  Report Type: Spontaneous
  Country: US (occurrence: US)
  Receive Date: 20141205
  Receipt Date: 20141205
  Transmission Date: 20150529
  Serious: Yes (Hospitalization)
  Sender: FDA-Public Use
  Company Number: US-GLAXOSMITHKLINE-US2014GSK032040

PATIENT
  Sex: Female

DRUGS (2)
  1. DIGIBIND [Suspect]
     Active Substance: OVINE DIGOXIN IMMUNE FAB
     Indication: CARDIOACTIVE DRUG LEVEL INCREASED
     Dosage: UNK
     Route: 042
     Dates: start: 20141121, end: 20141121
  2. DIGOXIN. [Suspect]
     Active Substance: DIGOXIN
     Indication: PRODUCT USED FOR UNKNOWN INDICATION
     Dosage: UNK, U

REACTIONS (1)
  - Cardioactive drug level increased [Recovered/Resolved]

NARRATIVE: CASE EVENT DATE: 20141121
